FAERS Safety Report 24092839 (Version 5)
Quarter: 2024Q4

REPORT INFORMATION
  Report Type: Spontaneous
  Country: ES (occurrence: ES)
  Receive Date: 20240715
  Receipt Date: 20241031
  Transmission Date: 20250115
  Serious: Yes (Life-Threatening, Hospitalization, Other)
  Sender: PFIZER
  Company Number: ES-Accord-433738

PATIENT
  Age: 66 Year
  Sex: Female
  Weight: 66 kg

DRUGS (8)
  1. CARBOPLATIN [Suspect]
     Active Substance: CARBOPLATIN
     Indication: Small cell lung cancer
     Dosage: 380 MG, CYCLIC (EVERY 3 WEEKS)
     Dates: start: 20240515, end: 20240725
  2. CARBOPLATIN [Suspect]
     Active Substance: CARBOPLATIN
     Dosage: 460 MG, CYCLIC (EVERY 3 WEEKS)
     Route: 041
     Dates: start: 20240515, end: 20240725
  3. CARBOPLATIN [Suspect]
     Active Substance: CARBOPLATIN
     Dosage: 380 MG, CYCLIC (EVERY 3 WEEKS)
     Route: 041
     Dates: start: 20240725, end: 20240725
  4. ETOPOSIDE [Suspect]
     Active Substance: ETOPOSIDE
     Indication: Small cell lung cancer
     Dosage: 120 MG, EVERY 3 WEEKS
     Dates: start: 20240515, end: 20240725
  5. ETOPOSIDE [Suspect]
     Active Substance: ETOPOSIDE
     Dosage: 160 MG, EVERY 3 WEEKS
     Route: 041
     Dates: start: 20240515, end: 20240725
  6. ETOPOSIDE [Suspect]
     Active Substance: ETOPOSIDE
     Dosage: 120 MG, EVERY 3 WEEKS
     Route: 041
     Dates: start: 20240725, end: 20240727
  7. TIOTROPIUM BROMIDE [Concomitant]
     Active Substance: TIOTROPIUM BROMIDE
     Indication: Chronic obstructive pulmonary disease
     Dosage: 2.5 UG, 2X/DAY
     Route: 055
  8. SALMETEROL [Concomitant]
     Active Substance: SALMETEROL
     Indication: Chronic obstructive pulmonary disease
     Dosage: TWICE DAILY, INHALATION

REACTIONS (6)
  - Febrile neutropenia [Recovered/Resolved]
  - Anaemia [Recovered/Resolved]
  - White blood cell count decreased [Unknown]
  - COVID-19 [Recovered/Resolved]
  - Sepsis [Recovered/Resolved]
  - Off label use [Unknown]

NARRATIVE: CASE EVENT DATE: 20240515
